FAERS Safety Report 12295092 (Version 4)
Quarter: 2016Q2

REPORT INFORMATION
  Report Type: Report from Study
  Country: FR (occurrence: FR)
  Receive Date: 20160422
  Receipt Date: 20160623
  Transmission Date: 20160815
  Serious: Yes (Death, Life-Threatening, Hospitalization)
  Sender: FDA-Public Use
  Company Number: FR-CELGENEUS-FRA-2016042015

PATIENT
  Age: 78 Year
  Sex: Female
  Weight: 62.4 kg

DRUGS (23)
  1. CC-4047 [Suspect]
     Active Substance: POMALIDOMIDE
     Route: 048
     Dates: start: 20160329, end: 20160406
  2. ZELITREX [Concomitant]
     Active Substance: VALACYCLOVIR HYDROCHLORIDE
     Indication: ANTIVIRAL PROPHYLAXIS
     Dosage: 5 MILLIGRAM
     Route: 048
     Dates: start: 20151204
  3. CEFTRIAXONE. [Concomitant]
     Active Substance: CEFTRIAXONE
     Indication: PNEUMONIA
     Dosage: 40 MILLIGRAM
     Route: 048
     Dates: start: 20160406
  4. VALACYCLOVIR [Concomitant]
     Active Substance: VALACYCLOVIR HYDROCHLORIDE
     Indication: ANTIVIRAL PROPHYLAXIS
     Route: 048
     Dates: start: 20151124
  5. LASILIX [Concomitant]
     Active Substance: FUROSEMIDE
     Indication: OEDEMA PERIPHERAL
     Dosage: 1200 MILLIGRAM
     Route: 048
     Dates: start: 20160115
  6. KALEORID [Concomitant]
     Active Substance: POTASSIUM CHLORIDE
     Indication: PROPHYLAXIS
     Dosage: 10 MILLIGRAM
     Route: 048
     Dates: start: 20160115
  7. CEFEPIME [Concomitant]
     Active Substance: CEFEPIME HYDROCHLORIDE
     Indication: COUGH
     Route: 048
     Dates: start: 20160405
  8. BORTEZOMIB [Suspect]
     Active Substance: BORTEZOMIB
     Route: 058
     Dates: start: 20160329, end: 20160405
  9. STILNOX [Concomitant]
     Active Substance: ZOLPIDEM TARTRATE
     Indication: INSOMNIA
     Route: 048
     Dates: start: 20151124
  10. AERIUS [Concomitant]
     Active Substance: DESLORATADINE
     Indication: ANTIALLERGIC THERAPY
     Route: 048
     Dates: start: 20151201, end: 20160108
  11. CC-4047 [Suspect]
     Active Substance: POMALIDOMIDE
     Indication: PLASMA CELL MYELOMA
     Route: 048
     Dates: start: 20151124, end: 20151207
  12. BORTEZOMIB [Suspect]
     Active Substance: BORTEZOMIB
     Indication: PLASMA CELL MYELOMA
     Route: 058
     Dates: start: 20151124, end: 20151204
  13. DEXAMETHASONE. [Suspect]
     Active Substance: DEXAMETHASONE
     Indication: PLASMA CELL MYELOMA
     Route: 048
     Dates: start: 20151124, end: 20151205
  14. DEXAMETHASONE. [Suspect]
     Active Substance: DEXAMETHASONE
     Dosage: 4 MILLIGRAM
     Route: 048
     Dates: start: 20160329, end: 20160406
  15. KARDEGIC [Concomitant]
     Active Substance: ASPIRIN LYSINE
     Indication: THROMBOSIS PROPHYLAXIS
     Route: 048
     Dates: start: 20151124
  16. CODOLIPRANE [Concomitant]
     Active Substance: ACETAMINOPHEN\CODEINE PHOSPHATE
     Indication: PAIN PROPHYLAXIS
     Dosage: 75 MILLIGRAM
     Route: 048
     Dates: start: 20151124
  17. SPIRAMYCINE [Concomitant]
     Active Substance: SPIRAMYCIN
     Indication: PNEUMONIA
     Dosage: 400 MILLIGRAM
     Route: 041
     Dates: start: 20160408
  18. OXYCONTIN [Concomitant]
     Active Substance: OXYCODONE HYDROCHLORIDE
     Indication: BACK PAIN
     Dosage: 1.25 MILLIGRAM
     Route: 048
     Dates: start: 20160115
  19. OXYNORM [Concomitant]
     Active Substance: OXYCODONE HYDROCHLORIDE
     Indication: BACK PAIN
     Dosage: 1000 MILLIGRAM
     Route: 048
     Dates: start: 20160115
  20. ZOMETA [Concomitant]
     Active Substance: ZOLEDRONIC ACID
     Indication: PROPHYLAXIS
     Dosage: 1000 MILLIGRAM
     Route: 041
     Dates: start: 20160329
  21. TELMISART [Concomitant]
     Indication: HYPERTENSION
     Dosage: 20 MILLIGRAM
     Route: 048
     Dates: start: 20160329
  22. OROKEN [Concomitant]
     Active Substance: CEFIXIME
     Indication: COUGH
     Dosage: 1000 MILLIGRAM
     Route: 048
     Dates: start: 20160405
  23. PROCTOLOG [Concomitant]
     Active Substance: TRIMEBUTINE
     Indication: HAEMORRHOIDS
     Route: 054
     Dates: start: 20160308

REACTIONS (1)
  - Influenza [Fatal]

NARRATIVE: CASE EVENT DATE: 20160407
